FAERS Safety Report 12635103 (Version 1)
Quarter: 2016Q3

REPORT INFORMATION
  Report Type: Spontaneous
  Country: FR (occurrence: FR)
  Receive Date: 20160809
  Receipt Date: 20160809
  Transmission Date: 20161109
  Serious: Yes (Other)
  Sender: FDA-Public Use
  Company Number: FR-JNJFOC-20160805648

PATIENT
  Age: 41 Year
  Sex: Male

DRUGS (8)
  1. REMICADE [Suspect]
     Active Substance: INFLIXIMAB
     Indication: ANAL FISTULA
     Route: 042
     Dates: start: 201301, end: 201312
  2. REMICADE [Suspect]
     Active Substance: INFLIXIMAB
     Indication: ANAL ABSCESS
     Route: 042
     Dates: start: 201210
  3. REMICADE [Suspect]
     Active Substance: INFLIXIMAB
     Indication: ANAL ABSCESS
     Route: 042
     Dates: start: 2006
  4. REMICADE [Suspect]
     Active Substance: INFLIXIMAB
     Indication: ANAL FISTULA
     Route: 042
     Dates: start: 2006
  5. REMICADE [Suspect]
     Active Substance: INFLIXIMAB
     Indication: ANAL FISTULA
     Route: 042
     Dates: start: 201211
  6. REMICADE [Suspect]
     Active Substance: INFLIXIMAB
     Indication: ANAL ABSCESS
     Route: 042
     Dates: start: 201211
  7. REMICADE [Suspect]
     Active Substance: INFLIXIMAB
     Indication: ANAL FISTULA
     Route: 042
     Dates: start: 201210
  8. REMICADE [Suspect]
     Active Substance: INFLIXIMAB
     Indication: ANAL ABSCESS
     Route: 042
     Dates: start: 201301, end: 201312

REACTIONS (2)
  - Hypersensitivity [Unknown]
  - Dermatitis exfoliative [Unknown]

NARRATIVE: CASE EVENT DATE: 201210
